FAERS Safety Report 6040038-4 (Version None)
Quarter: 2009Q1

REPORT INFORMATION
  Report Type: 
  Country: None (occurrence: None)
  Receive Date: 20090116
  Receipt Date: 20071121
  Transmission Date: 20090719
  Serious: No
  Sender: FDA-Public Use
  Company Number: US-BRISTOL-MYERS SQUIBB COMPANY-13991815

PATIENT
  Age: 24 Year
  Sex: Female

DRUGS (2)
  1. ABILIFY [Suspect]
     Indication: SCHIZOPHRENIA
     Dosage: ABILIFY 15MG FOR 2 WEEKS WAS GIVEN.
  2. PERPHENAZINE [Suspect]
     Indication: SCHIZOPHRENIA

REACTIONS (1)
  - HALLUCINATIONS, MIXED [None]
